FAERS Safety Report 6126451-5 (Version None)
Quarter: 2009Q1

REPORT INFORMATION
  Report Type: 
  Country: None (occurrence: None)
  Receive Date: 20090320
  Receipt Date: 20090310
  Transmission Date: 20090719
  Serious: Yes (Other)
  Sender: FDA-Public Use
  Company Number: US-ABBOTT-09P-163-0562220-00

PATIENT
  Sex: Male
  Weight: 79.45 kg

DRUGS (5)
  1. SIMCOR [Suspect]
     Indication: BLOOD CHOLESTEROL INCREASED
     Route: 048
     Dates: start: 20090101, end: 20090101
  2. SIMCOR [Suspect]
     Dosage: 500/20
     Route: 048
  3. ASPIRIN [Concomitant]
     Indication: PROPHYLAXIS
     Route: 048
     Dates: start: 20081217, end: 20090101
  4. ASPIRIN [Concomitant]
     Indication: FLUSHING
     Route: 048
     Dates: start: 20090101
  5. LOPID [Concomitant]
     Indication: BLOOD CHOLESTEROL INCREASED
     Route: 048

REACTIONS (4)
  - BURNING SENSATION [None]
  - DYSPHAGIA [None]
  - FLUSHING [None]
  - PRURITUS [None]
